FAERS Safety Report 6558332-7 (Version None)
Quarter: 2010Q1

REPORT INFORMATION
  Report Type: 
  Country: None (occurrence: None)
  Receive Date: 20100129
  Receipt Date: 20100118
  Transmission Date: 20100710
  Serious: Yes (Other)
  Sender: FDA-Public Use
  Company Number: US-JNJFOC-20100109160

PATIENT
  Sex: Male

DRUGS (4)
  1. CHILDREN'S TYLENOL SUSPENSION [Suspect]
  2. CHILDREN'S TYLENOL SUSPENSION [Suspect]
     Indication: MALAISE
  3. CHILDREN'S MOTRIN BERRY SUSPENSION [Suspect]
  4. CHILDREN'S MOTRIN BERRY SUSPENSION [Suspect]
     Indication: MALAISE

REACTIONS (7)
  - EATING DISORDER [None]
  - PRODUCT ODOUR ABNORMAL [None]
  - PRODUCT QUALITY ISSUE [None]
  - PRODUCT TASTE ABNORMAL [None]
  - PYREXIA [None]
  - TREMOR [None]
  - VOMITING [None]
